FAERS Safety Report 19208044 (Version 1)
Quarter: 2021Q2

REPORT INFORMATION
  Report Type: Spontaneous
  Country: US (occurrence: US)
  Receive Date: 20210503
  Receipt Date: 20210503
  Transmission Date: 20210717
  Serious: No
  Sender: FDA-Public Use
  Company Number: US-ABBVIE-20K-163-3666348-00

PATIENT
  Sex: Male
  Weight: 124.85 kg

DRUGS (1)
  1. CREON [Suspect]
     Active Substance: PANCRELIPASE AMYLASE\PANCRELIPASE LIPASE\PANCRELIPASE PROTEASE
     Indication: PANCREATIC FAILURE
     Route: 048

REACTIONS (5)
  - Anal incontinence [Unknown]
  - Diarrhoea [Unknown]
  - Irritability [Unknown]
  - General physical health deterioration [Unknown]
  - Anxiety [Unknown]

NARRATIVE: CASE EVENT DATE: 2018
